FAERS Safety Report 4564721-2 (Version None)
Quarter: 2005Q1

REPORT INFORMATION
  Report Type: 
  Country: None (occurrence: None)
  Receive Date: 20050128
  Receipt Date: 20050119
  Transmission Date: 20050727
  Serious: Yes (Death)
  Sender: FDA-Public Use
  Company Number: US-ABBOTT-05P-163-0287626-00

PATIENT
  Sex: Female

DRUGS (1)
  1. DILAUDID [Suspect]
     Indication: POSTOPERATIVE ANALGESIA
     Dates: start: 20030113

REACTIONS (5)
  - HYPOXIC ENCEPHALOPATHY [None]
  - INJURY [None]
  - PAIN [None]
  - RESPIRATORY ARREST [None]
  - UNEVALUABLE EVENT [None]
